FAERS Safety Report 21341627 (Version 1)
Quarter: 2022Q3

REPORT INFORMATION
  Report Type: Spontaneous
  Country: US (occurrence: None)
  Receive Date: 20220915
  Receipt Date: 20220915
  Transmission Date: 20221027
  Serious: Yes (Hospitalization)
  Sender: FDA-Public Use
  Company Number: None

PATIENT
  Age: 73 Year
  Sex: Female
  Weight: 54 kg

DRUGS (9)
  1. YESCARTA [Suspect]
     Active Substance: AXICABTAGENE CILOLEUCEL
     Indication: Follicular lymphoma
     Dosage: FREQUENCY : ONCE;?
     Route: 040
     Dates: start: 20220523
  2. ACTEMRA [Concomitant]
     Active Substance: TOCILIZUMAB
     Dates: start: 20220529, end: 20220531
  3. anakinra (Kineret) subcutaneous injection [Concomitant]
     Dates: start: 20220531, end: 20220609
  4. dexAMETHasone (Decadron) injection [Concomitant]
     Dates: start: 20220526, end: 20220618
  5. levETIRAcetam (Keppra) 500 mg tablet [Concomitant]
     Dates: start: 20220523, end: 20220915
  6. acyclovir (Zovirax) [Concomitant]
     Dates: start: 20220523, end: 20220915
  7. lacosamide (Vimpat [Concomitant]
     Dates: start: 20220531, end: 20220628
  8. LEVOFLOXACIN [Concomitant]
     Active Substance: LEVOFLOXACIN
     Dates: start: 20220602
  9. cefepime (Maxipime) [Concomitant]
     Dates: start: 20220601, end: 20220618

REACTIONS (2)
  - Cytokine release syndrome [None]
  - Immune effector cell-associated neurotoxicity syndrome [None]

NARRATIVE: CASE EVENT DATE: 20220523
